FAERS Safety Report 9306363 (Version 2)
Quarter: 2013Q2

REPORT INFORMATION
  Report Type: Spontaneous
  Country: AR (occurrence: None)
  Receive Date: 20130307
  Receipt Date: 20130529
  Transmission Date: 20140414
  Serious: Yes (Congenital Anomaly)
  Sender: FDA-Public Use
  Company Number: ADR-2013UNK021

PATIENT
  Age: 161 Day
  Sex: 0

DRUGS (2)
  1. LAMIVUDINE AND ZIDOVUDINE [Suspect]
     Indication: ACQUIRED IMMUNODEFICIENCY SYNDROME
     Route: 048
     Dates: start: 20100211, end: 20100707
  2. LOPINAVIR+RITONAVIR [Concomitant]

REACTIONS (5)
  - Hydrocephalus [None]
  - Stillbirth [None]
  - Brain malformation [None]
  - Maternal drugs affecting foetus [None]
  - Ventricular septal defect [None]
